FAERS Safety Report 16570000 (Version 1)
Quarter: 2019Q3

REPORT INFORMATION
  Report Type: Spontaneous
  Country: DE (occurrence: DE)
  Receive Date: 20190715
  Receipt Date: 20190715
  Transmission Date: 20191004
  Serious: Yes (Hospitalization)
  Sender: FDA-Public Use
  Company Number: DE-TEVA-2019-DE-1076498

PATIENT
  Age: 63 Year
  Sex: Male

DRUGS (3)
  1. TIOTROPIUM BROMIDE [Concomitant]
     Active Substance: TIOTROPIUM BROMIDE
     Dosage: 18 ?G, 1-0-0-0
  2. ETOPOSIDE. [Suspect]
     Active Substance: ETOPOSIDE
     Dosage: NK MG, NK
  3. CARBOPLATIN. [Suspect]
     Active Substance: CARBOPLATIN
     Dosage: NK MG, NK

REACTIONS (2)
  - Cough [Unknown]
  - Pyrexia [Unknown]
